FAERS Safety Report 7987096-5 (Version None)
Quarter: 2011Q4

REPORT INFORMATION
  Report Type: 
  Country: None (occurrence: None)
  Receive Date: 20111216
  Receipt Date: 20111211
  Transmission Date: 20120403
  Serious: No
  Sender: FDA-Public Use
  Company Number: US-B.I. PHARMACEUTICALS,INC./RIDGEFIELD-2011-BP-27848BP

PATIENT
  Sex: Female

DRUGS (7)
  1. VITAMIN C [Concomitant]
  2. CALCIUM [Concomitant]
     Dosage: 1200 MG
  3. B COMPLEX SUPPLEMENT [Concomitant]
  4. MULTI-VITAMIN [Concomitant]
  5. ASPIRIN [Concomitant]
     Dosage: 80 MG
  6. MICARDIS [Suspect]
     Dosage: 40 MG
     Route: 048
     Dates: start: 20111101, end: 20111209
  7. LOSARTEN [Concomitant]

REACTIONS (5)
  - BACK PAIN [None]
  - SINUS CONGESTION [None]
  - POLLAKIURIA [None]
  - URINE ODOUR ABNORMAL [None]
  - CHROMATURIA [None]
